FAERS Safety Report 12398246 (Version 1)
Quarter: 2016Q2

REPORT INFORMATION
  Report Type: Spontaneous
  Country: US (occurrence: None)
  Receive Date: 20160523
  Receipt Date: 20160523
  Transmission Date: 20160815
  Serious: No
  Sender: FDA-Public Use
  Company Number: None

PATIENT
  Age: 30 Year
  Sex: Male
  Weight: 68.2 kg

DRUGS (1)
  1. INTRON A [Suspect]
     Active Substance: INTERFERON ALFA-2B
     Dates: start: 20150202

REACTIONS (3)
  - Oral discomfort [None]
  - Mucosal inflammation [None]
  - Lymphocyte count decreased [None]

NARRATIVE: CASE EVENT DATE: 20150203
